FAERS Safety Report 26090982 (Version 1)
Quarter: 2025Q4

REPORT INFORMATION
  Report Type: Report from Study
  Country: US (occurrence: US)
  Receive Date: 20251126
  Receipt Date: 20251126
  Transmission Date: 20260119
  Serious: Yes (Other)
  Sender: ALEXION PHARMACEUTICALS
  Company Number: A202213887

PATIENT
  Age: 13 Year
  Sex: Male

DRUGS (1)
  1. STRENSIQ [Suspect]
     Active Substance: ASFOTASE ALFA
     Indication: Phosphorus metabolism disorder
     Dosage: 180 MILLIGRAM, TIW, AS DIRECTED, ROTATE INJECTION SITES
     Route: 065

REACTIONS (4)
  - Haematochezia [Unknown]
  - Migraine [Unknown]
  - Vitamin D decreased [Unknown]
  - Alanine aminotransferase increased [Unknown]

NARRATIVE: CASE EVENT DATE: 20250603
